FAERS Safety Report 5246032-5 (Version None)
Quarter: 2007Q1

REPORT INFORMATION
  Report Type: 
  Country: None (occurrence: None)
  Receive Date: 20061201
  Receipt Date: 20060725
  Transmission Date: 20070707
  Serious: No
  Sender: FDA-Public Use
  Company Number: 2006PV018214

PATIENT
  Age: 70 Year
  Sex: Female

DRUGS (7)
  1. BYETTA [Suspect]
     Indication: DIABETES MELLITUS NON-INSULIN-DEPENDENT
     Dosage: 5 MCG;BID;SC
     Route: 058
     Dates: start: 20060721
  2. GLUCOTROL [Concomitant]
  3. HUMAPEN [Concomitant]
  4. LASIX [Concomitant]
  5. LIPITOR [Concomitant]
  6. LANTUS [Concomitant]
  7. HUMALOG PEN [Concomitant]

REACTIONS (5)
  - BLOOD GLUCOSE DECREASED [None]
  - GROIN PAIN [None]
  - INSOMNIA [None]
  - NAUSEA [None]
  - PAIN [None]
